FAERS Safety Report 8757904 (Version 1)
Quarter: 2012Q4

REPORT INFORMATION
  Report Type: 
  Country: BR (occurrence: BR)
  Receive Date: 20120828
  Receipt Date: 20120828
  Transmission Date: 20130627
  Serious: Yes (Death, Other)
  Sender: FDA-Public Use
  Company Number: BR-ASTRAZENECA-2012SE64558

PATIENT
  Age: 33 Year
  Sex: Female

DRUGS (1)
  1. SELOZOK [Suspect]
     Route: 048
     Dates: end: 201206

REACTIONS (2)
  - Myocardial infarction [Fatal]
  - Drug dose omission [Not Recovered/Not Resolved]
